FAERS Safety Report 16362820 (Version 1)
Quarter: 2019Q2

REPORT INFORMATION
  Report Type: Spontaneous
  Country: US (occurrence: US)
  Receive Date: 20190520
  Receipt Date: 20190520
  Transmission Date: 20190711
  Serious: No
  Sender: FDA-Public Use
  Company Number: None

PATIENT
  Age: 54 Year
  Sex: Female
  Weight: 112 kg

DRUGS (2)
  1. 24 HOUR PLASMA - THAWED [Suspect]
     Active Substance: HUMAN PLASMA
     Indication: TRAUMATIC HAEMORRHAGE
     Route: 042
     Dates: start: 20190504, end: 20190504
  2. 24 HOUR PLASMA - THAWED [Suspect]
     Active Substance: HUMAN PLASMA
     Indication: TRAUMATIC HAEMORRHAGE
     Route: 042
     Dates: start: 20190504, end: 20190504

REACTIONS (1)
  - Expired product administered [None]

NARRATIVE: CASE EVENT DATE: 20190504
